FAERS Safety Report 18490248 (Version 1)
Quarter: 2020Q4

REPORT INFORMATION
  Report Type: Spontaneous
  Country: GB (occurrence: GB)
  Receive Date: 20201111
  Receipt Date: 20201111
  Transmission Date: 20210114
  Serious: Yes (Death, Hospitalization)
  Sender: FDA-Public Use
  Company Number: GB-TEVA-2020-GB-1846919

PATIENT
  Age: 54 Year
  Sex: Male

DRUGS (8)
  1. BISOPROLOL [Concomitant]
     Active Substance: BISOPROLOL
  2. FUROSEMIDE. [Concomitant]
     Active Substance: FUROSEMIDE
  3. ACETYLSALICYLIC ACID [Concomitant]
     Active Substance: ASPIRIN
  4. LANSOPRAZOLE. [Concomitant]
     Active Substance: LANSOPRAZOLE
  5. ENTRESTO [Suspect]
     Active Substance: SACUBITRIL\VALSARTAN
     Indication: LEFT VENTRICULAR DYSFUNCTION
     Dosage: 24MG/26MG, 2 DF
     Route: 048
     Dates: start: 20200304, end: 20200812
  6. SIMVASTATIN. [Concomitant]
     Active Substance: SIMVASTATIN
  7. DIGOXIN. [Concomitant]
     Active Substance: DIGOXIN
  8. SPIRONOLACTONE. [Suspect]
     Active Substance: SPIRONOLACTONE
     Indication: ASCITES
     Dosage: 200 MILLIGRAM DAILY; AT 6PM
     Route: 048
     Dates: end: 20200812

REACTIONS (6)
  - Atrial flutter [Fatal]
  - Seizure [Fatal]
  - Labelled drug-drug interaction medication error [Fatal]
  - Brain injury [Fatal]
  - Hyperkalaemia [Fatal]
  - Cardiac arrest [Fatal]

NARRATIVE: CASE EVENT DATE: 20200812
